FAERS Safety Report 6387238-1 (Version None)
Quarter: 2009Q3

REPORT INFORMATION
  Report Type: 
  Country: None (occurrence: None)
  Receive Date: 20090928
  Receipt Date: 20090918
  Transmission Date: 20100115
  Serious: No
  Sender: FDA-Public Use
  Company Number: 2009010485

PATIENT
  Age: 52 Year
  Sex: Male
  Weight: 127.0072 kg

DRUGS (3)
  1. FENTORA [Suspect]
     Indication: NEUROPATHY PERIPHERAL
     Dosage: 200 MCG (100 MCG, AS NEEDED), BU
     Route: 002
     Dates: start: 20090904
  2. LYRICA [Concomitant]
  3. UNSPECIFIED LAXATIVE (SENNOSIDE A+B) [Concomitant]

REACTIONS (3)
  - DRUG INEFFECTIVE [None]
  - DRUG PRESCRIBING ERROR [None]
  - INADEQUATE ANALGESIA [None]
